FAERS Safety Report 6762644-1 (Version None)
Quarter: 2010Q2

REPORT INFORMATION
  Report Type: 
  Country: None (occurrence: None)
  Receive Date: 20100609
  Receipt Date: 20100602
  Transmission Date: 20101027
  Serious: Yes (Other)
  Sender: FDA-Public Use
  Company Number: CHPA2009US18712

PATIENT
  Sex: Female
  Weight: 57.143 kg

DRUGS (9)
  1. MAALOX ADV MAXIMUM STRENGTH ANTACID/ANTIGAS (NCH) [Suspect]
     Indication: FLATULENCE
     Dosage: TAKES 3 CAPFULS (SHE SAYS EQUALS 3 TEASPOONS) AT ONCE AT HS  REGULARLY
     Route: 048
     Dates: start: 20080101
  2. MAALOX ADV MAXIMUM STRENGTH ANTACID/ANTIGAS (NCH) [Suspect]
     Indication: DYSPEPSIA
  3. MAALOX ADV MAXIMUM STRENGTH ANTACID/ANTIGAS (NCH) [Suspect]
     Indication: LAXATIVE SUPPORTIVE CARE
  4. ZESTRIL [Concomitant]
     Indication: HYPERTENSION
     Dosage: 30 MG, QD
     Route: 048
     Dates: start: 20040101
  5. MAXZIDE [Concomitant]
     Indication: JOINT SWELLING
     Dosage: 25 MG, QD
     Route: 048
     Dates: start: 19940101
  6. ATENOLOL [Concomitant]
     Indication: ATRIAL FIBRILLATION
     Dosage: 25 MG, QD
     Route: 048
     Dates: start: 19790101
  7. ASPIRIN [Concomitant]
     Indication: PROPHYLAXIS
     Dosage: 81 MG, QD
     Route: 048
     Dates: start: 19990101
  8. VITAMIN B-12 [Concomitant]
     Dosage: 500 MG, QD
     Route: 048
     Dates: start: 20050101
  9. VITAMIN B-12 [Concomitant]
     Dosage: UNK, ONE INJECTION EACH MONTH
     Dates: start: 20050101

REACTIONS (16)
  - BLOOD CREATININE INCREASED [None]
  - BLOOD UREA INCREASED [None]
  - DEHYDRATION [None]
  - DRY MOUTH [None]
  - HYPERSENSITIVITY [None]
  - INGUINAL HERNIA REPAIR [None]
  - INTENTIONAL DRUG MISUSE [None]
  - LIMB OPERATION [None]
  - LIP SWELLING [None]
  - OFF LABEL USE [None]
  - PHYSIOTHERAPY [None]
  - RESPIRATORY DISTRESS [None]
  - SWOLLEN TONGUE [None]
  - THERAPEUTIC RESPONSE UNEXPECTED [None]
  - UPPER LIMB FRACTURE [None]
  - WRONG TECHNIQUE IN DRUG USAGE PROCESS [None]
